FAERS Safety Report 6039101-3 (Version None)
Quarter: 2009Q1

REPORT INFORMATION
  Report Type: 
  Country: None (occurrence: None)
  Receive Date: 20090115
  Receipt Date: 20090109
  Transmission Date: 20090719
  Serious: Yes (Hospitalization)
  Sender: FDA-Public Use
  Company Number: US-SANOFI-SYNTHELABO-F01200900025

PATIENT
  Age: 61 Year
  Sex: Female
  Weight: 50.4 kg

DRUGS (9)
  1. HEMAX [Concomitant]
     Dosage: UNK
  2. LASIX [Concomitant]
     Dosage: UNK
  3. BEVACIZUMAB [Suspect]
     Route: 041
     Dates: start: 20080923, end: 20080923
  4. ATIVAN [Concomitant]
     Dosage: UNK
  5. FLUOROURACIL [Suspect]
     Dosage: 400 MG/M2 IV BOLUS ON DAY 1 THEN 2.4 G/M2 IV OVER 46 HOURS CONTINUOUSLY
     Route: 042
     Dates: start: 20080923, end: 20080925
  6. NORVASC [Suspect]
     Dosage: UNK
     Route: 048
  7. LEUCOVORIN CALCIUM [Suspect]
     Route: 041
     Dates: start: 20080923, end: 20080923
  8. RADIATION [Suspect]
     Indication: RECTAL CANCER
     Dosage: 50.4 GY
     Dates: start: 20080401, end: 20080501
  9. ELOXATIN [Suspect]
     Indication: RECTAL CANCER
     Route: 041
     Dates: start: 20080923, end: 20080923

REACTIONS (4)
  - CARDIAC FAILURE CONGESTIVE [None]
  - DYSPNOEA [None]
  - PLEURAL EFFUSION [None]
  - PULMONARY OEDEMA [None]
